FAERS Safety Report 5386237-6 (Version None)
Quarter: 2007Q3

REPORT INFORMATION
  Report Type: 
  Country: None (occurrence: None)
  Receive Date: 20070710
  Receipt Date: 20070710
  Transmission Date: 20080115
  Serious: No
  Sender: FDA-Public Use
  Company Number: None

PATIENT
  Age: 31 Year
  Sex: Female
  Weight: 59.8748 kg

DRUGS (1)
  1. LOW-OGESTREL-28 [Suspect]
     Indication: CONTRACEPTION
     Dosage: 1 TIME DAY PO
     Route: 048
     Dates: start: 20070701, end: 20070707

REACTIONS (1)
  - HEADACHE [None]
